FAERS Safety Report 13658480 (Version 2)
Quarter: 2017Q2

REPORT INFORMATION
  Report Type: Spontaneous
  Country: US (occurrence: US)
  Receive Date: 20170616
  Receipt Date: 20170620
  Transmission Date: 20170830
  Serious: No
  Sender: FDA-Public Use
  Company Number: US-PFIZER INC-2017259121

PATIENT
  Age: 52 Year
  Sex: Female

DRUGS (1)
  1. SOLU-MEDROL [Suspect]
     Active Substance: METHYLPREDNISOLONE SODIUM SUCCINATE
     Dosage: UNK (40 MG VIAL, 40MG/ML, 1 ML)

REACTIONS (1)
  - Injection site pain [Recovered/Resolved]
